FAERS Safety Report 15184967 (Version 1)
Quarter: 2018Q3

REPORT INFORMATION
  Report Type: Spontaneous
  Country: US (occurrence: US)
  Receive Date: 20180723
  Receipt Date: 20180723
  Transmission Date: 20181010
  Serious: No
  Sender: FDA-Public Use
  Company Number: US-AMGEN-USASP2018082272

PATIENT
  Age: 43 Year
  Sex: Female

DRUGS (1)
  1. REPATHA [Suspect]
     Active Substance: EVOLOCUMAB
     Indication: HYPERCHOLESTEROLAEMIA
     Dosage: 420 MG, QMO
     Route: 065
     Dates: start: 2016

REACTIONS (7)
  - Accidental exposure to product [Unknown]
  - Drug dose omission [Unknown]
  - Onychoclasis [Recovering/Resolving]
  - Onychomadesis [Recovering/Resolving]
  - Injection site pain [Unknown]
  - Therapeutic response unexpected [Unknown]
  - Yellow skin [Unknown]

NARRATIVE: CASE EVENT DATE: 201702
